FAERS Safety Report 13181974 (Version 1)
Quarter: 2017Q1

REPORT INFORMATION
  Report Type: Spontaneous
  Country: US (occurrence: US)
  Receive Date: 20170202
  Receipt Date: 20170202
  Transmission Date: 20170428
  Serious: No
  Sender: FDA-Public Use
  Company Number: US-IMPAX LABORATORIES, INC-2016-IPXL-02435

PATIENT
  Age: 74 Year
  Sex: Female

DRUGS (5)
  1. ADVIL [Concomitant]
     Active Substance: IBUPROFEN
     Indication: HEADACHE
     Dosage: TWO TABLETS, EVERY 4HR
     Route: 065
  2. RYTARY [Suspect]
     Active Substance: CARBIDOPA\LEVODOPA
     Indication: PARKINSON^S DISEASE
     Dosage: 36.25MG/145MG 2 CAPS AT 6AM, 10AM, 2PM, 6PM AND 10PM1 CAP @ 8AM, 12PM, 4PM, 8PM AND 12AM
     Route: 065
  3. RYTARY [Suspect]
     Active Substance: CARBIDOPA\LEVODOPA
     Dosage: (36.25/145)MG THREE CAPSULES EVERY FOUR HOURS
     Route: 065
  4. RYTARY [Suspect]
     Active Substance: CARBIDOPA\LEVODOPA
     Dosage: (36.25/145)MG TWO CAPSULES
     Route: 065
  5. CARBIDOPA-LEVODOPA ER [Suspect]
     Active Substance: CARBIDOPA\LEVODOPA
     Indication: PARKINSON^S DISEASE
     Dosage: (25/100) MG IN BETWEEN ALONG WITH RYTARY
     Route: 065
     Dates: start: 2004

REACTIONS (2)
  - Drug effect decreased [Unknown]
  - Dyskinesia [Unknown]
